FAERS Safety Report 14184113 (Version 3)
Quarter: 2018Q2

REPORT INFORMATION
  Report Type: Spontaneous
  Country: US (occurrence: US)
  Receive Date: 20171113
  Receipt Date: 20180605
  Transmission Date: 20180711
  Serious: Yes (Hospitalization)
  Sender: FDA-Public Use
  Company Number: US-PFIZER INC-2017486545

PATIENT
  Age: 58 Year
  Sex: Female

DRUGS (1)
  1. LYRICA [Suspect]
     Active Substance: PREGABALIN
     Indication: DIABETIC NEUROPATHY
     Dosage: 600 MG, DAILY (300 MG 2 A DAY)

REACTIONS (6)
  - Overdose [Unknown]
  - Pain [Unknown]
  - Back disorder [Unknown]
  - Haemorrhage [Unknown]
  - Mental disorder [Unknown]
  - Peripheral swelling [Unknown]
